FAERS Safety Report 12346480 (Version 2)
Quarter: 2016Q2

REPORT INFORMATION
  Report Type: Report from Study
  Country: JP (occurrence: JP)
  Receive Date: 20160509
  Receipt Date: 20160607
  Transmission Date: 20160815
  Serious: Yes (Other)
  Sender: FDA-Public Use
  Company Number: JP-ROCHE-1753375

PATIENT
  Age: 23 Year
  Sex: Male

DRUGS (1)
  1. CEFTRIAXONE. [Suspect]
     Active Substance: CEFTRIAXONE
     Indication: CENTRAL NERVOUS SYSTEM INFECTION
     Route: 065

REACTIONS (2)
  - Drug-induced liver injury [Unknown]
  - Cholelithiasis [Unknown]
